FAERS Safety Report 13927190 (Version 11)
Quarter: 2018Q2

REPORT INFORMATION
  Report Type: Report from Study
  Country: US (occurrence: US)
  Receive Date: 20170831
  Receipt Date: 20180411
  Transmission Date: 20180711
  Serious: Yes (Hospitalization)
  Sender: FDA-Public Use
  Company Number: US-ACTELION-A-US2016-145678

PATIENT
  Age: 45 Year
  Sex: Female
  Weight: 58.96 kg

DRUGS (5)
  1. VELETRI [Suspect]
     Active Substance: EPOPROSTENOL
     Indication: PULMONARY ARTERIAL HYPERTENSION
     Dosage: 37 NG/KG, PER MIN
     Route: 042
     Dates: start: 20141208
  2. REVATIO [Concomitant]
     Active Substance: SILDENAFIL CITRATE
  3. WARFARIN [Concomitant]
     Active Substance: WARFARIN
     Dosage: UNK
  4. DAPTOMYCIN. [Suspect]
     Active Substance: DAPTOMYCIN
     Indication: PRODUCT USED FOR UNKNOWN INDICATION
     Dosage: UNK
     Route: 065
  5. VELETRI [Suspect]
     Active Substance: EPOPROSTENOL
     Dosage: UNK
     Route: 042

REACTIONS (19)
  - Diarrhoea [Unknown]
  - Neuropathy peripheral [Unknown]
  - Malaise [Unknown]
  - Joint swelling [Unknown]
  - Oxygen saturation decreased [Unknown]
  - Pulmonary hypertension [Unknown]
  - Musculoskeletal discomfort [Unknown]
  - Platelet count decreased [Unknown]
  - Lung disorder [Unknown]
  - Localised infection [Unknown]
  - Respiratory distress [Unknown]
  - Blood pressure decreased [Unknown]
  - Nausea [Unknown]
  - Transfusion [Unknown]
  - Pneumonia [Unknown]
  - Cardiac disorder [Unknown]
  - Expired product administered [Unknown]
  - Systemic lupus erythematosus [Unknown]
  - Headache [Unknown]
